FAERS Safety Report 5259310-0 (Version None)
Quarter: 2007Q1

REPORT INFORMATION
  Report Type: 
  Country: None (occurrence: None)
  Receive Date: 20070308
  Receipt Date: 20070301
  Transmission Date: 20070707
  Serious: Yes (Hospitalization, Other)
  Sender: FDA-Public Use
  Company Number: US-MERCK-0608USA02226

PATIENT
  Age: 44 Year
  Sex: Female

DRUGS (1)
  1. FOSAMAX [Suspect]
     Indication: OSTEOPOROSIS
     Route: 048
     Dates: start: 20000101, end: 20010101

REACTIONS (7)
  - ANXIETY [None]
  - BRONCHITIS CHRONIC [None]
  - DEPRESSION [None]
  - HYPOAESTHESIA [None]
  - ORAL CANDIDIASIS [None]
  - OSTEONECROSIS [None]
  - PNEUMONIA [None]
